FAERS Safety Report 9681562 (Version 3)
Quarter: 2014Q1

REPORT INFORMATION
  Report Type: Spontaneous
  Country: CA (occurrence: CA)
  Receive Date: 20131111
  Receipt Date: 20140312
  Transmission Date: 20141002
  Serious: Yes (Other)
  Sender: FDA-Public Use
  Company Number: CA-AMGEN-CANSP2013079090

PATIENT
  Age: 70 Year
  Sex: Female
  Weight: 72.56 kg

DRUGS (6)
  1. ENBREL [Suspect]
     Indication: RHEUMATOID ARTHRITIS
     Dosage: UNK
     Route: 065
  2. PLAQUENIL                          /00072602/ [Concomitant]
     Dosage: UNK
  3. NAPROXEN [Concomitant]
     Dosage: UNK
  4. PREDNISONE [Concomitant]
     Dosage: 5 MG, UNK
  5. LYRICA [Concomitant]
     Dosage: UNK
  6. GOLD [Concomitant]
     Dosage: UNK

REACTIONS (10)
  - Spinal fusion surgery [Recovered/Resolved]
  - Intervertebral disc protrusion [Recovered/Resolved]
  - Cataract [Recovered/Resolved]
  - Arthralgia [Unknown]
  - Red blood cell sedimentation rate abnormal [Unknown]
  - Dental caries [Unknown]
  - Weight increased [Unknown]
  - Increased appetite [Unknown]
  - Weight decreased [Unknown]
  - Nasopharyngitis [Unknown]
